FAERS Safety Report 6559130-0 (Version None)
Quarter: 2010Q1

REPORT INFORMATION
  Report Type: 
  Country: None (occurrence: None)
  Receive Date: 20100129
  Receipt Date: 20100122
  Transmission Date: 20100710
  Serious: Yes (Hospitalization)
  Sender: FDA-Public Use
  Company Number: US-AMGEN-QUU388051

PATIENT
  Sex: Female

DRUGS (2)
  1. ENBREL [Suspect]
     Indication: PSORIATIC ARTHROPATHY
     Route: 058
     Dates: start: 20070101
  2. ENBREL [Suspect]
     Indication: PSORIASIS

REACTIONS (7)
  - ARTHRALGIA [None]
  - BONE CYST [None]
  - DECREASED APPETITE [None]
  - DELIRIUM [None]
  - HALLUCINATION [None]
  - INJECTION SITE STREAKING [None]
  - JOINT SWELLING [None]
